FAERS Safety Report 9708275 (Version 1)
Quarter: 2013Q4

REPORT INFORMATION
  Report Type: Spontaneous
  Country: US (occurrence: US)
  Receive Date: 20131125
  Receipt Date: 20131125
  Transmission Date: 20140711
  Serious: Yes (Hospitalization)
  Sender: FDA-Public Use
  Company Number: US-BAYER-2013-142437

PATIENT
  Age: 36 Year
  Sex: Female
  Weight: 86.17 kg

DRUGS (11)
  1. YAZ [Suspect]
     Indication: MENORRHAGIA
     Dosage: UNK
  2. GIANVI [Suspect]
     Dosage: UNK
  3. YASMIN [Suspect]
     Dosage: UNK
  4. LEVOFLOXACIN [Concomitant]
     Dosage: 500 MG, UNK
  5. VALACICLOVIR [Concomitant]
     Dosage: 500 MG, UNK
  6. ERYTHROMYCIN [Concomitant]
     Dosage: UNK
  7. OMEPRAZOLE [Concomitant]
     Dosage: UNK
  8. VICODIN [Concomitant]
     Dosage: UNK
  9. IRON [Concomitant]
     Dosage: UNK
  10. IBUPROFEN [Concomitant]
     Indication: CHEST PAIN
     Dosage: UNK
  11. ZINC [Concomitant]
     Dosage: UNK

REACTIONS (3)
  - Pelvic venous thrombosis [Recovered/Resolved]
  - Vena cava thrombosis [Recovered/Resolved]
  - Deep vein thrombosis [Recovered/Resolved]
